FAERS Safety Report 6711960-8 (Version None)
Quarter: 2010Q2

REPORT INFORMATION
  Report Type: 
  Country: None (occurrence: None)
  Receive Date: 20100505
  Receipt Date: 20100427
  Transmission Date: 20101027
  Serious: Yes (Other)
  Sender: FDA-Public Use
  Company Number: CH-PFIZER INC-2010052866

PATIENT
  Age: 34 Year
  Sex: Male

DRUGS (3)
  1. SOLU-MEDROL [Suspect]
     Indication: MULTIPLE SCLEROSIS
     Dosage: UNK
     Dates: start: 20100114, end: 20100116
  2. SOLU-MEDROL [Suspect]
     Dosage: UNK
     Dates: start: 20080801, end: 20080801
  3. COPAXONE [Concomitant]
     Indication: MULTIPLE SCLEROSIS
     Route: 058

REACTIONS (1)
  - PSYCHOTIC DISORDER [None]
